FAERS Safety Report 8780445 (Version 1)
Quarter: 2012Q4

REPORT INFORMATION
  Report Type: Spontaneous
  Country: US (occurrence: None)
  Receive Date: 20120906
  Receipt Date: 20120906
  Transmission Date: 20130627
  Serious: No
  Sender: FDA-Public Use
  Company Number: None

PATIENT
  Age: 77 Year
  Sex: Female
  Weight: 68.04 kg

DRUGS (1)
  1. CREST PRO HEALTH CLINICAL MOUTHWASH [Suspect]
     Indication: DENTAL CARE

REACTIONS (3)
  - Oral pain [None]
  - Ageusia [None]
  - Oral disorder [None]
